FAERS Safety Report 5374224-3 (Version None)
Quarter: 2007Q2

REPORT INFORMATION
  Report Type: 
  Country: None (occurrence: None)
  Receive Date: 20070627
  Receipt Date: 20060919
  Transmission Date: 20071010
  Serious: Yes (Hospitalization)
  Sender: FDA-Public Use
  Company Number: 463758

PATIENT
  Age: 70 Year
  Sex: Female

DRUGS (2)
  1. XELODA [Suspect]
     Indication: PANCREATIC CARCINOMA
     Dosage: 2 PER DAY ORAL
     Route: 048
     Dates: start: 20020215
  2. FLUOROURACIL [Concomitant]

REACTIONS (1)
  - RECALL PHENOMENON [None]
